FAERS Safety Report 8813425 (Version 1)
Quarter: 2012Q4

REPORT INFORMATION
  Report Type: 
  Country: US (occurrence: US)
  Receive Date: 20120927
  Receipt Date: 20120927
  Transmission Date: 20130627
  Serious: No
  Sender: FDA-Public Use
  Company Number: US-AMGEN-USASP2012039370

PATIENT
  Age: 72 Year
  Sex: Female
  Weight: 60.77 kg

DRUGS (7)
  1. PROLIA [Suspect]
     Indication: OSTEOPOROSIS
     Dosage: 60 mg, q6mo
     Route: 030
     Dates: start: 20111115
  2. PROLIA [Suspect]
     Dosage: 60 mg, q6mo
     Route: 030
     Dates: start: 20120515
  3. MOBIC [Concomitant]
     Indication: PAIN
     Dosage: UNK UNK, prn
     Route: 048
  4. XANAX [Concomitant]
     Indication: SLEEP DISORDER
     Dosage: UNK UNK, prn
     Route: 048
  5. VITAMIN D /00107901/ [Concomitant]
     Indication: VITAMIN D DEFICIENCY
     Dosage: UNK UNK, qwk
     Route: 048
  6. METHOTREXATE [Concomitant]
     Indication: RHEUMATOID ARTHRITIS
     Dosage: UNK UNK, qwk
     Route: 048
  7. FOLIC ACID [Concomitant]
     Indication: ARTHRITIS
     Dosage: UNK UNK, qd
     Route: 048

REACTIONS (2)
  - Rash maculo-papular [Not Recovered/Not Resolved]
  - Pruritus [Not Recovered/Not Resolved]
